FAERS Safety Report 10044691 (Version 1)
Quarter: 2014Q1

REPORT INFORMATION
  Report Type: Spontaneous
  Country: CY (occurrence: None)
  Receive Date: 20140326
  Receipt Date: 20140326
  Transmission Date: 20141002
  Serious: Yes (Congenital Anomaly)
  Sender: FDA-Public Use
  Company Number: HRA-CDB20140030

PATIENT
  Sex: 0

DRUGS (4)
  1. ELLAONE [Suspect]
     Indication: EXPOSURE DURING PREGNANCY
     Dosage: 30 MG, 1 IN 1 D
     Route: 064
     Dates: start: 20121220, end: 20121220
  2. VOLTRAREN [Concomitant]
  3. IRON [Concomitant]
  4. FOLIC ACID [Concomitant]

REACTIONS (4)
  - Pregnancy after post coital contraception [None]
  - No therapeutic response [None]
  - Abortion induced [None]
  - Exposure during pregnancy [None]
